FAERS Safety Report 16176242 (Version 2)
Quarter: 2019Q3

REPORT INFORMATION
  Report Type: Spontaneous
  Country: US (occurrence: US)
  Receive Date: 20190409
  Receipt Date: 20190731
  Transmission Date: 20191004
  Serious: Yes (Other)
  Sender: FDA-Public Use
  Company Number: US-SA-2019SA093371

PATIENT
  Age: 74 Year
  Sex: Female
  Weight: 95 kg

DRUGS (6)
  1. SODIUM CHLORIDE. [Concomitant]
     Active Substance: SODIUM CHLORIDE
     Dosage: UNK
     Route: 042
     Dates: start: 20130416, end: 20130417
  2. TAXOTERE [Suspect]
     Active Substance: DOCETAXEL
     Dosage: 145 MG, Q3W
     Route: 042
     Dates: start: 20130618, end: 20130618
  3. DECADRON [Concomitant]
     Active Substance: DEXAMETHASONE
     Dosage: 4 MG, QD
     Route: 042
     Dates: start: 20130416, end: 20130417
  4. ZOFRAN [Concomitant]
     Active Substance: ONDANSETRON HYDROCHLORIDE
     Dosage: 16 MG, UNK
     Route: 042
     Dates: start: 20130416, end: 20130416
  5. CYTOXAN [Concomitant]
     Active Substance: CYCLOPHOSPHAMIDE
     Indication: BREAST CANCER
     Dosage: 1190 MG, UNK
     Route: 042
     Dates: start: 20130416, end: 20130416
  6. TAXOTERE [Suspect]
     Active Substance: DOCETAXEL
     Indication: BREAST NEOPLASM
     Dosage: 145 MG, Q3W
     Route: 042
     Dates: start: 20130413, end: 20130413

REACTIONS (1)
  - Alopecia [Recovering/Resolving]

NARRATIVE: CASE EVENT DATE: 201305
